FAERS Safety Report 11295082 (Version 4)
Quarter: 2015Q3

REPORT INFORMATION
  Report Type: Spontaneous
  Country: FR (occurrence: FR)
  Receive Date: 20150723
  Receipt Date: 20150806
  Transmission Date: 20151125
  Serious: Yes (Hospitalization, Other)
  Sender: FDA-Public Use
  Company Number: FR-PFIZER INC-2015238940

PATIENT
  Age: 60 Year
  Sex: Male

DRUGS (12)
  1. ALDACTONE [Suspect]
     Active Substance: SPIRONOLACTONE
     Dosage: 0.5 DF, 1X/DAY
     Route: 048
     Dates: start: 20150402, end: 20150402
  2. SALAZOPYRINE [Suspect]
     Active Substance: SULFASALAZINE
     Indication: RHEUMATOID ARTHRITIS
     Dosage: 3 DF, 3X/DAY
     Route: 048
     Dates: start: 20150205, end: 20150326
  3. ELIQUIS [Suspect]
     Active Substance: APIXABAN
     Indication: CEREBROVASCULAR ACCIDENT PROPHYLAXIS
     Dosage: 5 MG, 2X/DAY
     Route: 048
     Dates: start: 20150218, end: 20150402
  4. FLECAINE LP [Concomitant]
     Active Substance: FLECAINIDE
     Dosage: 100 MG, UNK
     Route: 048
  5. NEURONTIN [Suspect]
     Active Substance: GABAPENTIN
     Route: 048
  6. EUPANTOL [Concomitant]
     Active Substance: PANTOPRAZOLE SODIUM
     Dosage: 20 MG, UNK
     Route: 048
  7. DOLIPRANE [Concomitant]
     Active Substance: ACETAMINOPHEN
     Route: 048
  8. ALLOPURINOL. [Suspect]
     Active Substance: ALLOPURINOL
     Dosage: 200 MG, 1X/DAY
     Route: 048
     Dates: start: 20150402, end: 20150402
  9. CORTANCYL [Concomitant]
     Active Substance: PREDNISONE
     Route: 048
  10. OROKEN [Suspect]
     Active Substance: CEFIXIME
     Dosage: 1 DF, 2X/DAY
     Route: 048
     Dates: start: 20150331, end: 20150402
  11. EZETROL [Suspect]
     Active Substance: EZETIMIBE
     Dosage: 1 DF, 1X/DAY
     Route: 048
     Dates: start: 20150402, end: 20150402
  12. LIORESAL [Suspect]
     Active Substance: BACLOFEN
     Dosage: 10 MG, UNK
     Dates: end: 20150402

REACTIONS (3)
  - Pyrexia [Recovered/Resolved]
  - Agranulocytosis [Recovered/Resolved]
  - Neutropenia [Recovered/Resolved]

NARRATIVE: CASE EVENT DATE: 20150326
